FAERS Safety Report 7307154-8 (Version None)
Quarter: 2011Q1

REPORT INFORMATION
  Report Type: 
  Country: None (occurrence: None)
  Receive Date: 20110223
  Receipt Date: 20110211
  Transmission Date: 20110831
  Serious: Yes (Other)
  Sender: FDA-Public Use
  Company Number: SE-JNJFOC-20110205487

PATIENT
  Age: 55 Year
  Sex: Female

DRUGS (6)
  1. SALAZOPYRIN [Concomitant]
     Indication: PRODUCT USED FOR UNKNOWN INDICATION
  2. OMEPRAZOLE [Concomitant]
     Indication: PRODUCT USED FOR UNKNOWN INDICATION
  3. SIMPONI [Suspect]
     Indication: RHEUMATOID ARTHRITIS
     Route: 042
  4. SIMPONI [Suspect]
     Route: 042
  5. LEVOTHYROXINE SODIUM [Concomitant]
     Indication: PRODUCT USED FOR UNKNOWN INDICATION
  6. ALVEDON [Concomitant]
     Indication: PRODUCT USED FOR UNKNOWN INDICATION

REACTIONS (5)
  - ARTERIOSPASM CORONARY [None]
  - HYPOAESTHESIA FACIAL [None]
  - DIZZINESS [None]
  - ORAL VIRAL INFECTION [None]
  - NAUSEA [None]
